FAERS Safety Report 5452044-9 (Version None)
Quarter: 2007Q3

REPORT INFORMATION
  Report Type: 
  Country: None (occurrence: None)
  Receive Date: 20070912
  Receipt Date: 20070827
  Transmission Date: 20080115
  Serious: Yes (Hospitalization)
  Sender: FDA-Public Use
  Company Number: ENTC2007-0247

PATIENT
  Age: 86 Year
  Sex: Female

DRUGS (2)
  1. STALEVO 100 [Suspect]
     Indication: PARKINSON'S DISEASE
     Dosage: TID,
  2. ACETYLSALICYLIC ACID (UNKNOWN) [Suspect]
     Dosage: 81 MG,

REACTIONS (5)
  - ALPHA HAEMOLYTIC STREPTOCOCCAL INFECTION [None]
  - ANALGESIC DRUG LEVEL INCREASED [None]
  - DRUG INTERACTION [None]
  - ENDOCARDITIS BACTERIAL [None]
  - MENTAL STATUS CHANGES [None]
